FAERS Safety Report 15680561 (Version 2)
Quarter: 2019Q1

REPORT INFORMATION
  Report Type: Spontaneous
  Country: US (occurrence: US)
  Receive Date: 20181203
  Receipt Date: 20190221
  Transmission Date: 20190417
  Serious: Yes (Hospitalization, Other)
  Sender: FDA-Public Use
  Company Number: PHHY2018US166567

PATIENT
  Age: 34 Year
  Sex: Female

DRUGS (1)
  1. PANTOPRAZOLE [Suspect]
     Active Substance: PANTOPRAZOLE
     Indication: REFLUX GASTRITIS
     Dosage: UNK
     Route: 065

REACTIONS (12)
  - Cardiovascular disorder [Recovered/Resolved]
  - Acute generalised exanthematous pustulosis [Recovered/Resolved]
  - Rash pustular [Recovered/Resolved]
  - Rash erythematous [Recovered/Resolved]
  - Staphylococcal infection [Recovered/Resolved]
  - Pyrexia [Recovered/Resolved]
  - Night sweats [Recovered/Resolved]
  - Hypotension [Recovered/Resolved]
  - Leukocytosis [Recovered/Resolved]
  - Rash pruritic [Recovered/Resolved]
  - Chills [Recovered/Resolved]
  - Eosinophilia [Recovered/Resolved]
